FAERS Safety Report 6418041-1 (Version None)
Quarter: 2009Q4

REPORT INFORMATION
  Report Type: 
  Country: None (occurrence: None)
  Receive Date: 20091028
  Receipt Date: 20091017
  Transmission Date: 20100525
  Serious: Yes (Other)
  Sender: FDA-Public Use
  Company Number: US-PFIZER INC-2009285997

PATIENT
  Sex: Male

DRUGS (1)
  1. VIAGRA [Suspect]
     Dosage: UNK MG, UNK
     Route: 048

REACTIONS (4)
  - BURNING SENSATION [None]
  - ERECTION INCREASED [None]
  - INTENTIONAL DRUG MISUSE [None]
  - PRIAPISM [None]
